FAERS Safety Report 22595694 (Version 1)
Quarter: 2023Q2

REPORT INFORMATION
  Report Type: Spontaneous
  Country: US (occurrence: None)
  Receive Date: 20230612
  Receipt Date: 20230612
  Transmission Date: 20230721
  Serious: No
  Sender: FDA-Public Use
  Company Number: None

PATIENT
  Age: 63 Year
  Sex: Female
  Weight: 119.29 kg

DRUGS (13)
  1. IBRANCE [Suspect]
     Active Substance: PALBOCICLIB
     Indication: Breast cancer female
     Dosage: 75MG 14D ON 7D OFF ORAL
     Route: 048
  2. ALBUTEROL [Concomitant]
  3. ALEVE [Concomitant]
     Active Substance: NAPROXEN SODIUM
  4. AMLODIPINE [Concomitant]
  5. ANASTROZOLE [Concomitant]
     Active Substance: ANASTROZOLE
  6. ASPIRIN [Concomitant]
  7. CALCIUM [Concomitant]
     Active Substance: CALCIUM
  8. CARVEDILOL [Concomitant]
     Active Substance: CARVEDILOL
  9. GLIPIZIDE ER [Concomitant]
     Active Substance: GLIPIZIDE
  10. LANTUS SOLOSTAR [Concomitant]
     Active Substance: INSULIN GLARGINE
  11. STIOLTO RESPIMAT [Concomitant]
     Active Substance: OLODATEROL HYDROCHLORIDE\TIOTROPIUM BROMIDE MONOHYDRATE
  12. TYLENOL [Concomitant]
  13. WARFARIN [Concomitant]

REACTIONS (2)
  - Full blood count abnormal [None]
  - Therapy interrupted [None]
